FAERS Safety Report 10154083 (Version 1)
Quarter: 2014Q2

REPORT INFORMATION
  Report Type: Spontaneous
  Country: US (occurrence: None)
  Receive Date: 20140505
  Receipt Date: 20140505
  Transmission Date: 20141212
  Serious: No
  Sender: FDA-Public Use
  Company Number: None

PATIENT
  Age: 17 Year
  Sex: Female
  Weight: 104.33 kg

DRUGS (3)
  1. ADDERALL [Suspect]
     Indication: ATTENTION DEFICIT/HYPERACTIVITY DISORDER
     Dosage: 1 TAB QD ORAL
     Route: 048
     Dates: start: 20140301, end: 20140502
  2. LITHOBID [Concomitant]
  3. LEXAPRO [Concomitant]

REACTIONS (1)
  - Drug ineffective [None]
